FAERS Safety Report 5053911-0 (Version None)
Quarter: 2006Q3

REPORT INFORMATION
  Report Type: 
  Country: None (occurrence: None)
  Receive Date: 20060718
  Receipt Date: 20060712
  Transmission Date: 20061208
  Serious: Yes (Hospitalization)
  Sender: FDA-Public Use
  Company Number: FR-JNJFOC-20060702288

PATIENT
  Age: 48 Year
  Sex: Female
  Weight: 80 kg

DRUGS (5)
  1. EPITOMAX [Suspect]
     Dosage: FOURTH WEEK
     Route: 048
  2. EPITOMAX [Suspect]
     Dosage: THIRD WEEK
     Route: 048
  3. EPITOMAX [Suspect]
     Dosage: SECOND WEEK
     Route: 048
  4. EPITOMAX [Suspect]
     Indication: MIGRAINE PROPHYLAXIS
     Dosage: FIRST WEEK
     Route: 048
  5. INDORAMIN [Concomitant]
     Route: 065

REACTIONS (2)
  - MEMORY IMPAIRMENT [None]
  - PANIC REACTION [None]
